FAERS Safety Report 6619087-0 (Version None)
Quarter: 2010Q1

REPORT INFORMATION
  Report Type: 
  Country: None (occurrence: None)
  Receive Date: 20100308
  Receipt Date: 20100301
  Transmission Date: 20100710
  Serious: Yes (Death, Hospitalization)
  Sender: FDA-Public Use
  Company Number: JP-WYE-H13538710

PATIENT
  Age: 79 Year
  Sex: Male

DRUGS (2)
  1. ANCARON [Suspect]
     Indication: ATRIAL FIBRILLATION
     Route: 048
     Dates: start: 20070804, end: 20100106
  2. LASIX [Concomitant]
     Dosage: DOSE UNKNOWN
     Route: 065
     Dates: start: 20070801, end: 20091226

REACTIONS (2)
  - INTERSTITIAL LUNG DISEASE [None]
  - PANCREATITIS [None]
